FAERS Safety Report 16551225 (Version 1)
Quarter: 2019Q3

REPORT INFORMATION
  Report Type: Spontaneous
  Country: US (occurrence: US)
  Receive Date: 20190709
  Receipt Date: 20190709
  Transmission Date: 20191004
  Serious: Yes (Other)
  Sender: FDA-Public Use
  Company Number: None

PATIENT
  Age: 9 Month
  Sex: Male
  Weight: 7.65 kg

DRUGS (8)
  1. SPECTRUM [Concomitant]
     Active Substance: ALCOHOL
  2. THIAMINE. [Concomitant]
     Active Substance: THIAMINE
  3. ACTH [Suspect]
     Active Substance: CORTICOTROPIN
     Indication: INFANTILE SPASMS
     Route: 030
     Dates: start: 20190405, end: 20190410
  4. LABATALOL [Concomitant]
  5. VIGABATRIN. [Concomitant]
     Active Substance: VIGABATRIN
  6. KEPPRA [Concomitant]
     Active Substance: LEVETIRACETAM
  7. RIBOFLAVIN [Concomitant]
     Active Substance: RIBOFLAVIN
  8. PHENO-BARBITOL [Concomitant]

REACTIONS (5)
  - Hypertension [None]
  - Brain injury [None]
  - Infantile spasms [None]
  - Condition aggravated [None]
  - Respiratory arrest [None]

NARRATIVE: CASE EVENT DATE: 20190410
